FAERS Safety Report 7454464-X (Version None)
Quarter: 2011Q2

REPORT INFORMATION
  Report Type: 
  Country: None (occurrence: None)
  Receive Date: 20110425
  Receipt Date: 20110414
  Transmission Date: 20111010
  Serious: Yes (Death)
  Sender: FDA-Public Use
  Company Number: 2010AC000084

PATIENT
  Age: 67 Year
  Sex: Female

DRUGS (13)
  1. ANTIVERT [Concomitant]
  2. PREDNISONE [Concomitant]
  3. BENICAR [Concomitant]
  4. GLUCOVANCE [Concomitant]
  5. COUMADIN [Concomitant]
  6. MAXZIDE [Concomitant]
  7. VITAMIN B-12 [Concomitant]
  8. VITAMIN B [Concomitant]
  9. TENORMIN [Concomitant]
  10. ZETIA [Concomitant]
  11. ASPIRIN [Concomitant]
  12. VASODILAN [Concomitant]
  13. DIGOXIN [Suspect]
     Dosage: 0.25 MG;QD;PO
     Route: 048
     Dates: start: 20040501, end: 20080401

REACTIONS (24)
  - ATRIAL FIBRILLATION [None]
  - BLOOD TRIGLYCERIDES INCREASED [None]
  - DEAFNESS UNILATERAL [None]
  - PAIN IN EXTREMITY [None]
  - SUDDEN DEATH [None]
  - CORONARY ARTERY DISEASE [None]
  - PAIN [None]
  - TOXICITY TO VARIOUS AGENTS [None]
  - CHRONIC OBSTRUCTIVE PULMONARY DISEASE [None]
  - HEADACHE [None]
  - ACUTE MYOCARDIAL INFARCTION [None]
  - HYPERTENSIVE HEART DISEASE [None]
  - MYOCARDIAL ISCHAEMIA [None]
  - VENTRICULAR FIBRILLATION [None]
  - ECONOMIC PROBLEM [None]
  - HYPERLIPIDAEMIA [None]
  - IMPAIRED WORK ABILITY [None]
  - MULTIPLE INJURIES [None]
  - VENTRICULAR EXTRASYSTOLES [None]
  - EPISTAXIS [None]
  - REFUSAL OF TREATMENT BY PATIENT [None]
  - BLOOD PRESSURE DIASTOLIC INCREASED [None]
  - CARDIAC FAILURE CONGESTIVE [None]
  - RASH [None]
